FAERS Safety Report 10277364 (Version 2)
Quarter: 2014Q3

REPORT INFORMATION
  Report Type: Report from Study
  Country: US (occurrence: US)
  Receive Date: 20140703
  Receipt Date: 20140717
  Transmission Date: 20150326
  Serious: Yes (Hospitalization)
  Sender: FDA-Public Use
  Company Number: US-009507513-1407USA001048

PATIENT
  Age: 72 Year
  Sex: Male
  Weight: 85.1 kg

DRUGS (13)
  1. CLONAZEPAM. [Concomitant]
     Active Substance: CLONAZEPAM
  2. AZACITIDINE. [Suspect]
     Active Substance: AZACITIDINE
     Dosage: 75 MG/M2, SQ OR IV ON DAYS 1-5 AND DAYS 8-9, CYCLE 28 DAYS, CYCLE 1
     Route: 058
     Dates: start: 20140217, end: 20140218
  3. CALCIUM (UNSPECIFIED) [Concomitant]
     Active Substance: CALCIUM
  4. NASONEX [Concomitant]
     Active Substance: MOMETASONE FUROATE
  5. VORINOSTAT [Suspect]
     Active Substance: VORINOSTAT
     Indication: MYELODYSPLASTIC SYNDROME
     Dosage: 300 MG, BID, ON DAYS 3-9  CYCLE = 28 DAYS
     Route: 048
     Dates: start: 20140212, end: 20140218
  6. AZACITIDINE. [Suspect]
     Active Substance: AZACITIDINE
     Indication: MYELODYSPLASTIC SYNDROME
     Dosage: 75 MG/M2, SQ OR IV ON DAYS 1-5 AND DAYS 8-9, CYCLE 28 DAYS, CYCLE 1
     Route: 058
     Dates: start: 20140210, end: 20140214
  7. AZACITIDINE. [Suspect]
     Active Substance: AZACITIDINE
     Dosage: 75 MG/M2, SQ OR IV ON DAYS 1-5 AND DAYS 8-9, CYCLE= 28 DAYS, CYCLE 5
     Dates: start: 20140609, end: 20140610
  8. TECTA [Concomitant]
     Active Substance: PANTOPRAZOLE MAGNESIUM
  9. AZACITIDINE. [Suspect]
     Active Substance: AZACITIDINE
     Dosage: 75 MG/M2, SQ OR IV ON DAYS 1-5 AND DAYS 8-9, CYCLE= 28 DAYS, CYCLE 5
     Dates: start: 20140602, end: 20140606
  10. VITAMINS (UNSPECIFIED) [Concomitant]
     Active Substance: VITAMINS
  11. DOCUSATE SODIUM. [Concomitant]
     Active Substance: DOCUSATE SODIUM
  12. VORINOSTAT [Suspect]
     Active Substance: VORINOSTAT
     Dosage: 300 MG, BID ON DAYS 3-9  CYCLE = 28 DAYS
     Route: 048
     Dates: start: 20140604, end: 20140610
  13. SENOKOT [Concomitant]
     Active Substance: SENNOSIDES

REACTIONS (1)
  - Anorectal infection [Recovered/Resolved]

NARRATIVE: CASE EVENT DATE: 20140617
